FAERS Safety Report 4465956-X (Version None)
Quarter: 2004Q3

REPORT INFORMATION
  Report Type: 
  Country: None (occurrence: None)
  Receive Date: 20040930
  Receipt Date: 20040915
  Transmission Date: 20050211
  Serious: Yes (Death, Hospitalization)
  Sender: FDA-Public Use
  Company Number: A-CH2004-07144

PATIENT
  Age: 55 Year
  Sex: Female

DRUGS (8)
  1. TRACLEER [Suspect]
     Indication: PULMONARY HYPERTENSION
     Dosage: SEE IMAGE
     Route: 048
     Dates: start: 20040310, end: 20040401
  2. TRACLEER [Suspect]
     Indication: PULMONARY HYPERTENSION
     Dosage: SEE IMAGE
     Route: 048
     Dates: start: 20040401, end: 20040512
  3. LEVOTHYROXINE SODIUM [Concomitant]
  4. ATORVASTATIN CALCIUM [Concomitant]
  5. CAPTOPRIL [Concomitant]
  6. DILZEM (DILTIAZEM HYDROCHLORIDE) [Concomitant]
  7. MARCUMAR [Concomitant]
  8. NITR-SPRAY (ISOSRBIDE DINITRATE) [Concomitant]

REACTIONS (5)
  - CONDITION AGGRAVATED [None]
  - PULMONARY HYPERTENSION [None]
  - RIGHT VENTRICULAR FAILURE [None]
  - SINUS TACHYCARDIA [None]
  - TRANSAMINASES INCREASED [None]
